FAERS Safety Report 9063259 (Version 1)
Quarter: 2013Q1

REPORT INFORMATION
  Report Type: Spontaneous
  Country: JP (occurrence: JP)
  Receive Date: 20130213
  Receipt Date: 20130213
  Transmission Date: 20140127
  Serious: Yes (Other)
  Sender: FDA-Public Use
  Company Number: JP-GLAXOSMITHKLINE-B0866278A

PATIENT
  Age: 15 Year
  Sex: 0

DRUGS (1)
  1. RELENZA [Suspect]
     Indication: PRODUCT USED FOR UNKNOWN INDICATION
     Dosage: 2IUAX TWICE PER DAY
     Route: 055
     Dates: start: 20130130

REACTIONS (2)
  - Hypothermia [Unknown]
  - Malaise [Unknown]
